FAERS Safety Report 25084431 (Version 1)
Quarter: 2025Q1

REPORT INFORMATION
  Report Type: Spontaneous
  Country: US (occurrence: None)
  Receive Date: 20250317
  Receipt Date: 20250317
  Transmission Date: 20250408
  Serious: Yes (Hospitalization)
  Sender: FDA-CTU
  Company Number: None

PATIENT
  Age: 66 Year
  Sex: Female

DRUGS (2)
  1. OPSUMIT [Suspect]
     Active Substance: MACITENTAN
     Indication: Pulmonary arterial hypertension
     Dosage: FREQUENCY : DAILY;?
     Route: 048
     Dates: start: 202209
  2. UPTRAVI [Suspect]
     Active Substance: SELEXIPAG

REACTIONS (5)
  - Cardiac failure [None]
  - Acute kidney injury [None]
  - Pulmonary hypertension [None]
  - Confusional state [None]
  - Treatment noncompliance [None]

NARRATIVE: CASE EVENT DATE: 20250228
